FAERS Safety Report 5250700-9 (Version None)
Quarter: 2007Q1

REPORT INFORMATION
  Report Type: 
  Country: None (occurrence: None)
  Receive Date: 20070228
  Receipt Date: 20060706
  Transmission Date: 20070707
  Serious: Yes (Disabling)
  Sender: FDA-Public Use
  Company Number: US-GLAXOSMITHKLINE-A0609854A

PATIENT
  Age: 26 Year
  Sex: Female
  Weight: 83.6 kg

DRUGS (3)
  1. LAMICTAL [Suspect]
     Indication: EPILEPSY
     Dosage: 100MG TWICE PER DAY
     Route: 048
     Dates: start: 20060501, end: 20060620
  2. ORTHO-NOVUM [Concomitant]
  3. VITAMIN CAP [Concomitant]

REACTIONS (2)
  - INFECTION [None]
  - RASH [None]
